FAERS Safety Report 4479549-1 (Version None)
Quarter: 2004Q4

REPORT INFORMATION
  Report Type: 
  Country: None (occurrence: None)
  Receive Date: 20041020
  Receipt Date: 20041018
  Transmission Date: 20050328
  Serious: Yes (Death, Hospitalization)
  Sender: FDA-Public Use
  Company Number: PHRM2004DZ03126

PATIENT
  Age: 60 Year
  Sex: Male

DRUGS (1)
  1. COTAREG [Suspect]
     Indication: HYPERTENSION
     Route: 048

REACTIONS (2)
  - DEATH [None]
  - RENAL FAILURE ACUTE [None]
